FAERS Safety Report 24963358 (Version 1)
Quarter: 2025Q1

REPORT INFORMATION
  Report Type: Spontaneous
  Country: BE (occurrence: BE)
  Receive Date: 20250213
  Receipt Date: 20250213
  Transmission Date: 20250409
  Serious: Yes (Other)
  Sender: CELLTRION
  Company Number: BE-ROCHE-3388360

PATIENT

DRUGS (22)
  1. TRASTUZUMAB [Suspect]
     Active Substance: TRASTUZUMAB
     Indication: Breast cancer metastatic
     Route: 041
     Dates: start: 20230605
  2. TRASTUZUMAB [Suspect]
     Active Substance: TRASTUZUMAB
     Route: 041
  3. RUNIMOTAMAB [Suspect]
     Active Substance: RUNIMOTAMAB
     Indication: Breast cancer metastatic
     Route: 042
     Dates: start: 20230606
  4. VANCOMYCIN [Concomitant]
     Active Substance: VANCOMYCIN
     Indication: Device related infection
     Route: 042
     Dates: start: 20230607, end: 20230607
  5. VANCOMYCIN [Concomitant]
     Active Substance: VANCOMYCIN
     Route: 042
     Dates: start: 20230608, end: 20230608
  6. FLUCLOXACILLIN SODIUM [Concomitant]
     Active Substance: FLUCLOXACILLIN SODIUM
     Indication: Device related infection
     Route: 042
     Dates: start: 20230608, end: 20230608
  7. FLUCLOXACILLIN SODIUM [Concomitant]
     Active Substance: FLUCLOXACILLIN SODIUM
     Route: 042
     Dates: start: 20230609, end: 20230614
  8. SODIUM CHLORIDE [Concomitant]
     Active Substance: SODIUM CHLORIDE
     Indication: Hypotension
     Route: 041
     Dates: start: 20230607, end: 20230607
  9. ETILEFRINE HYDROCHLORIDE [Concomitant]
     Active Substance: ETILEFRINE HYDROCHLORIDE
     Indication: Hypotension
     Route: 048
     Dates: start: 20230628
  10. LORMETAZEPAM [Concomitant]
     Active Substance: LORMETAZEPAM
     Indication: Anxiety
     Route: 048
     Dates: start: 202101
  11. FENTANYL [Concomitant]
     Active Substance: FENTANYL
     Indication: Bone pain
     Route: 062
     Dates: start: 201605
  12. DEXAMETHASONE [Concomitant]
     Active Substance: DEXAMETHASONE
     Indication: Bone pain
     Route: 041
     Dates: start: 20230606, end: 20230606
  13. DEXAMETHASONE [Concomitant]
     Active Substance: DEXAMETHASONE
     Route: 042
     Dates: start: 20230627, end: 20230627
  14. DAFALGAN [Concomitant]
     Active Substance: ACETAMINOPHEN
     Indication: Bone pain
     Route: 048
     Dates: start: 20230606, end: 20230606
  15. DAFALGAN [Concomitant]
     Active Substance: ACETAMINOPHEN
     Route: 048
     Dates: start: 20230627, end: 20230627
  16. DAFALGAN [Concomitant]
     Active Substance: ACETAMINOPHEN
     Route: 048
     Dates: start: 20230704, end: 20230704
  17. ESTIVAN [Concomitant]
     Indication: Infusion related reaction
     Route: 048
     Dates: start: 20230606, end: 20230606
  18. ESTIVAN [Concomitant]
     Route: 048
     Dates: start: 20230627, end: 20230627
  19. ESTIVAN [Concomitant]
     Route: 048
     Dates: start: 20230704
  20. SOLU-MEDROL [Concomitant]
     Active Substance: METHYLPREDNISOLONE SODIUM SUCCINATE
     Indication: Infusion related reaction
     Route: 041
     Dates: start: 20230605, end: 20230605
  21. ACETAMINOPHEN [Concomitant]
     Active Substance: ACETAMINOPHEN
     Indication: Infusion related reaction
     Route: 041
     Dates: start: 20230605, end: 20230605
  22. DEXAMETHASONE [Concomitant]
     Active Substance: DEXAMETHASONE
     Route: 048
     Dates: start: 20230704, end: 20230704

REACTIONS (1)
  - Cytokine release syndrome [Recovered/Resolved]

NARRATIVE: CASE EVENT DATE: 20230705
